FAERS Safety Report 15940847 (Version 1)
Quarter: 2019Q1

REPORT INFORMATION
  Report Type: Report from Study
  Country: US (occurrence: US)
  Receive Date: 20190208
  Receipt Date: 20190208
  Transmission Date: 20190417
  Serious: Yes (Life-Threatening, Other)
  Sender: FDA-Public Use
  Company Number: US-SHIRE-US201903209

PATIENT
  Age: 62 Year
  Sex: Female
  Weight: 80.73 kg

DRUGS (1)
  1. HUMAN NORMAL IMMUNOGLOBULIN; LIQUID 20 [Suspect]
     Active Substance: HUMAN IMMUNOGLOBULIN G
     Indication: IMMUNODEFICIENCY COMMON VARIABLE
     Dosage: 8 GRAM, 1X/WEEK
     Route: 058
     Dates: start: 20190110

REACTIONS (5)
  - Arrhythmia [Recovering/Resolving]
  - Abdominal discomfort [Recovering/Resolving]
  - Dyspnoea [Recovering/Resolving]
  - Oxygen saturation decreased [Recovering/Resolving]
  - Abdominal distension [Recovering/Resolving]

NARRATIVE: CASE EVENT DATE: 20190123
